FAERS Safety Report 5892578-6 (Version None)
Quarter: 2008Q3

REPORT INFORMATION
  Report Type: 
  Country: None (occurrence: None)
  Receive Date: 20080919
  Receipt Date: 20080908
  Transmission Date: 20090109
  Serious: Yes (Other)
  Sender: FDA-Public Use
  Company Number: DSU-2008-01403

PATIENT
  Age: 9 Year
  Sex: Male

DRUGS (2)
  1. BENICAR HCT [Suspect]
     Indication: TIC
     Dosage: 20/12.5 MG (QD) ,PER ORAL
     Route: 048
     Dates: start: 20071116, end: 20071201
  2. LAMOTRIGINE [Suspect]
     Indication: CONVULSION
     Dosage: 250 MG (125 MG, BID) ,PER ORAL
     Route: 048
     Dates: start: 20050101

REACTIONS (11)
  - ACTIVITIES OF DAILY LIVING IMPAIRED [None]
  - ANGER [None]
  - CONVULSION [None]
  - DRUG LEVEL DECREASED [None]
  - EYE ROLLING [None]
  - OFF LABEL USE [None]
  - SOCIAL AVOIDANT BEHAVIOUR [None]
  - STARING [None]
  - SUICIDAL IDEATION [None]
  - TIC [None]
  - VOMITING [None]
